FAERS Safety Report 15323630 (Version 1)
Quarter: 2018Q3

REPORT INFORMATION
  Report Type: Spontaneous
  Country: AU (occurrence: AU)
  Receive Date: 20180827
  Receipt Date: 20180827
  Transmission Date: 20181010
  Serious: Yes (Hospitalization)
  Sender: FDA-Public Use
  Company Number: AU-ABBVIE-18S-008-2458708-00

PATIENT
  Sex: Female
  Weight: 67 kg

DRUGS (23)
  1. DUODOPA [Suspect]
     Active Substance: CARBIDOPA\LEVODOPA
     Dosage: 20MG?5MG/L, MANE
     Route: 050
     Dates: start: 20180525
  2. ESOMEPRAZOLE APOTEX EC (ESOMEPRAZOLE (AS MAGNESIUM DIHYDRATE) [Concomitant]
     Indication: PRODUCT USED FOR UNKNOWN INDICATION
     Route: 048
     Dates: start: 20180525
  3. QUETIA (QUETIAPINE (AS FUMARATE) [Concomitant]
     Indication: PRODUCT USED FOR UNKNOWN INDICATION
     Route: 048
     Dates: start: 20180525
  4. ATROPINE SULFATE EYE DROPS 1% [Concomitant]
     Indication: PRODUCT USED FOR UNKNOWN INDICATION
     Dosage: NOCTE
     Route: 065
     Dates: start: 20180525
  5. COLOXYL WITH SENNA TABLET [Concomitant]
     Indication: PRODUCT USED FOR UNKNOWN INDICATION
     Dosage: 50MG/11.27MG (EQUIVALENT TO SENNOSIDE B 8MG)
     Route: 048
  6. EFEXOR?XR SR (VENLAFAXINE (AS HYDROCHLORIDE)) [Concomitant]
     Indication: PRODUCT USED FOR UNKNOWN INDICATION
     Route: 048
     Dates: start: 20180525
  7. GLYCEROL SUPPOSITORY (GLYCEROL) [Concomitant]
     Indication: CONSTIPATION
     Route: 054
     Dates: start: 20180525
  8. CALTRATE 600MG TABLETS [Concomitant]
     Indication: PRODUCT USED FOR UNKNOWN INDICATION
     Dosage: (EQUIVALENT TO 600MG CALCIUM) (CALCIUM CARBONATE)
     Route: 048
     Dates: start: 20180525
  9. NEUPRO PATCH (ROTIGOTINE) [Concomitant]
     Indication: PRODUCT USED FOR UNKNOWN INDICATION
     Dosage: 6MG/24HOURS
     Route: 065
     Dates: start: 20180525
  10. ZOPICLONE GH [Concomitant]
     Indication: PRODUCT USED FOR UNKNOWN INDICATION
     Dosage: NOCTE
     Route: 048
     Dates: start: 20180525
  11. PANADOL OSTEO SR TABLET (PARACETAMOL) [Concomitant]
     Indication: PRODUCT USED FOR UNKNOWN INDICATION
     Route: 048
     Dates: start: 20180525
  12. SYRINGE (DENOSUMAB (RCH)) [Concomitant]
     Indication: PRODUCT USED FOR UNKNOWN INDICATION
     Route: 058
  13. GAVISCON ORAL LIQUID [Concomitant]
     Indication: DYSPEPSIA
     Dosage: 500MG?267MG?160MG/10MG
     Route: 065
     Dates: start: 20180525
  14. NEO?B12 SOLD FOR INJ (HYDROXOCOBALAMIN (AS CHLORIDE)) [Concomitant]
     Indication: PRODUCT USED FOR UNKNOWN INDICATION
     Dosage: 1MG/1MG (1000MCG/1ML)
     Route: 030
     Dates: start: 20180525
  15. OXYTROL [Concomitant]
     Active Substance: OXYBUTYNIN
     Indication: PRODUCT USED FOR UNKNOWN INDICATION
     Dosage: 3.9/24 HRS
     Route: 065
     Dates: start: 20180622
  16. FLORINEF (FLUDORCORTISONE ACETATE) [Concomitant]
     Indication: PRODUCT USED FOR UNKNOWN INDICATION
     Route: 048
     Dates: start: 20180525
  17. LITHIUM CARBONATE. [Concomitant]
     Active Substance: LITHIUM CARBONATE
     Indication: PRODUCT USED FOR UNKNOWN INDICATION
     Route: 048
     Dates: start: 20180525
  18. XALATAN EYE DROPS (LATANOPROST) 0.0005% [Concomitant]
     Indication: PRODUCT USED FOR UNKNOWN INDICATION
     Dosage: 50MCG/ML)
     Route: 047
     Dates: start: 20180525
  19. COLCHICINE. [Concomitant]
     Active Substance: COLCHICINE
     Indication: GOUT
     Dosage: 1?2 TABLETS
     Route: 048
  20. LYRICA [Concomitant]
     Active Substance: PREGABALIN
     Indication: PRODUCT USED FOR UNKNOWN INDICATION
     Route: 048
     Dates: start: 20180525
  21. ROSTEVIT?D [Concomitant]
     Indication: PRODUCT USED FOR UNKNOWN INDICATION
     Dosage: 25MCG (100 UNITS VITAMIN D 3)
     Route: 048
  22. DUODOPA [Suspect]
     Active Substance: CARBIDOPA\LEVODOPA
     Indication: PARKINSON^S DISEASE
     Dosage: 20MG?5MG/L, MANE
     Route: 050
     Dates: start: 20180525
  23. LACTULOSE SYRUP (LACTULOSE) [Concomitant]
     Indication: PRODUCT USED FOR UNKNOWN INDICATION
     Route: 048
     Dates: start: 20180525

REACTIONS (1)
  - Deep vein thrombosis [Unknown]
